FAERS Safety Report 7093012-3 (Version None)
Quarter: 2010Q4

REPORT INFORMATION
  Report Type: 
  Country: None (occurrence: None)
  Receive Date: 20101110
  Receipt Date: 20101028
  Transmission Date: 20110411
  Serious: Yes (Other)
  Sender: FDA-Public Use
  Company Number: TR-ELI_LILLY_AND_COMPANY-TR201010002110

PATIENT
  Age: 33 Year
  Sex: Female

DRUGS (4)
  1. HUMALOG [Suspect]
     Indication: GESTATIONAL DIABETES
     Dosage: 6 U, 3/D
     Route: 058
     Dates: start: 20100618, end: 20100722
  2. MALTOFER FOL [Concomitant]
     Indication: MINERAL SUPPLEMENTATION
     Dosage: UNK UNK, DAILY (1/D)
     Route: 048
     Dates: end: 20100722
  3. ELEVIT [Concomitant]
     Indication: VITAMIN SUPPLEMENTATION
     Dosage: UNK UNK, DAILY (1/D)
     Route: 048
     Dates: end: 20100722
  4. GAVISCON                                /GFR/ [Concomitant]
     Dosage: UNK UNK, DAILY (1/D)
     Route: 048
     Dates: end: 20100722

REACTIONS (2)
  - DRUG EXPOSURE DURING PREGNANCY [None]
  - POSTPARTUM HAEMORRHAGE [None]
